FAERS Safety Report 9413303 (Version 2)
Quarter: 2013Q3

REPORT INFORMATION
  Report Type: Spontaneous
  Country: US (occurrence: US)
  Receive Date: 20130722
  Receipt Date: 20130808
  Transmission Date: 20140515
  Serious: Yes (Hospitalization)
  Sender: FDA-Public Use
  Company Number: US-GILEAD-2013-0079527

PATIENT
  Sex: Female

DRUGS (3)
  1. LETAIRIS [Suspect]
     Indication: RHEUMATOID ARTHRITIS
     Dosage: 5 MG, QD
     Dates: start: 20120724
  2. LETAIRIS [Suspect]
     Indication: PULMONARY HYPERTENSION
  3. SILDENAFIL [Concomitant]

REACTIONS (2)
  - Renal failure acute [Recovered/Resolved]
  - Device related infection [Recovering/Resolving]
